FAERS Safety Report 6907732-1 (Version None)
Quarter: 2010Q3

REPORT INFORMATION
  Report Type: 
  Country: None (occurrence: None)
  Receive Date: 20100709
  Receipt Date: 20091022
  Transmission Date: 20110219
  Serious: Yes (Hospitalization, Other)
  Sender: FDA-Public Use
  Company Number: 2009100051

PATIENT
  Age: 52 Year
  Sex: Male
  Weight: 83.9154 kg

DRUGS (1)
  1. SOMA [Suspect]
     Indication: BACK PAIN
     Dosage: 1400 MG (350 MG, 4 IN 1 AS REQUIRED), ORAL
     Route: 048
     Dates: start: 20070101

REACTIONS (3)
  - DRUG ABUSE [None]
  - DRUG DEPENDENCE [None]
  - WITHDRAWAL SYNDROME [None]
